FAERS Safety Report 9624665 (Version 1)
Quarter: 2013Q4

REPORT INFORMATION
  Report Type: Spontaneous
  Country: AU (occurrence: None)
  Receive Date: 20131010
  Receipt Date: 20131010
  Transmission Date: 20140711
  Serious: Yes (Hospitalization)
  Sender: FDA-Public Use
  Company Number: IMP_06838_2013

PATIENT
  Age: 24 Year
  Sex: Female

DRUGS (2)
  1. SODIUM VALPROATE [Suspect]
     Indication: CONVULSION
  2. DOXEPIN [Suspect]
     Indication: DEPRESSION

REACTIONS (6)
  - Convulsion [None]
  - Condition aggravated [None]
  - Anxiety [None]
  - Confusional state [None]
  - Encephalopathy [None]
  - Agitation [None]
